FAERS Safety Report 4829459-2 (Version None)
Quarter: 2005Q4

REPORT INFORMATION
  Report Type: 
  Country: None (occurrence: None)
  Receive Date: 20051116
  Receipt Date: 20051011
  Transmission Date: 20060501
  Serious: Yes (Death, Hospitalization)
  Sender: FDA-Public Use
  Company Number: US-MERCK-0510USA06627

PATIENT
  Age: 48 Year
  Sex: Female
  Weight: 107 kg

DRUGS (15)
  1. VIOXX [Suspect]
     Route: 048
  2. ACTOS [Concomitant]
     Route: 065
  3. AMBIEN [Concomitant]
     Route: 065
  4. DIOVAN [Concomitant]
     Route: 065
  5. ED-FLEX [Concomitant]
     Route: 065
  6. FLONASE [Concomitant]
     Route: 065
  7. GLUCOPHAGE [Concomitant]
     Route: 065
  8. KLOR-CON [Concomitant]
     Route: 065
  9. LOTREL [Concomitant]
     Route: 065
  10. NEXIUM [Concomitant]
     Route: 065
  11. PAXIL [Concomitant]
     Route: 065
  12. PRAVACHOL [Concomitant]
     Route: 065
  13. PRILOSEC [Concomitant]
     Route: 065
  14. TIAZAC [Concomitant]
     Route: 065
  15. FERROUS SULFATE [Concomitant]
     Route: 065

REACTIONS (1)
  - MYOCARDIAL INFARCTION [None]
